FAERS Safety Report 24776838 (Version 1)
Quarter: 2024Q4

REPORT INFORMATION
  Report Type: Spontaneous
  Country: CA (occurrence: CA)
  Receive Date: 20241226
  Receipt Date: 20241226
  Transmission Date: 20250115
  Serious: Yes (Hospitalization, Other)
  Sender: TEVA
  Company Number: CA-TEVA-VS-3277875

PATIENT
  Age: 7 Year
  Sex: Male

DRUGS (1)
  1. NAPROXEN [Suspect]
     Active Substance: NAPROXEN
     Indication: Juvenile idiopathic arthritis
     Dosage: DOSE FORM: NOT SPECIFIED
     Route: 065

REACTIONS (7)
  - Micrognathia [Unknown]
  - Gastrointestinal haemorrhage [Unknown]
  - Dermoid cyst [Unknown]
  - Feeding disorder [Unknown]
  - Temporomandibular pain and dysfunction syndrome [Unknown]
  - Drug effect less than expected [Unknown]
  - Microcytic anaemia [Unknown]
